FAERS Safety Report 24594005 (Version 2)
Quarter: 2024Q4

REPORT INFORMATION
  Report Type: Spontaneous
  Country: US (occurrence: US)
  Receive Date: 20241108
  Receipt Date: 20241211
  Transmission Date: 20250115
  Serious: Yes (Life-Threatening, Other)
  Sender: BAXTER
  Company Number: US-BAXTER-2024BAX027074

PATIENT
  Sex: Female
  Weight: 62.1 kg

DRUGS (7)
  1. DOXORUBICIN [Suspect]
     Active Substance: DOXORUBICIN
     Dosage: TOTAL DOSE ADMINISTERED THIS COURSE (DOSE): 63 MHZ
     Route: 065
     Dates: start: 20241005, end: 20241005
  2. CYCLOPHOSPHAMIDE [Suspect]
     Active Substance: CYCLOPHOSPHAMIDE
     Dosage: 1260 MG, TOTAL DOSE ADMINISTERED THIS COURSE (DOSE)
     Route: 065
     Dates: start: 20241002, end: 20241002
  3. VINCRISTINE SULFATE [Suspect]
     Active Substance: VINCRISTINE SULFATE
     Dosage: 2 MG, DAY 8, TOTAL DOSE ADMINISTERED THIS COURSE (DOSE): ADMINISTRATION (PLANNED FOR 09OCT2024) BEIN
     Route: 065
     Dates: start: 20241002, end: 20241002
  4. METHOTREXATE SODIUM [Suspect]
     Active Substance: METHOTREXATE SODIUM
     Dosage: 12 MG, TOTAL DOSE ADMINISTERED THIS COURSE (DOSE)
     Route: 065
     Dates: start: 20241004, end: 20241004
  5. DEXAMETHASONE [Suspect]
     Active Substance: DEXAMETHASONE
     Dosage: 80 MG, TOTAL DOSE ADMINISTERED THIS COURSE (DOSE)
     Route: 065
     Dates: start: 20241002, end: 20241005
  6. BLINATUMOMAB [Suspect]
     Active Substance: BLINATUMOMAB
     Dosage: UNK
     Route: 065
     Dates: start: 20241002
  7. CYTARABINE [Suspect]
     Active Substance: CYTARABINE
     Dosage: UNK, 2ND IT CHEMO
     Route: 037
     Dates: end: 20241015

REACTIONS (6)
  - Colitis [Recovering/Resolving]
  - Diarrhoea [Unknown]
  - Abdominal pain [Unknown]
  - Pyrexia [Unknown]
  - Tenderness [Unknown]
  - Neutropenia [Unknown]

NARRATIVE: CASE EVENT DATE: 20241007
